FAERS Safety Report 24211209 (Version 1)
Quarter: 2024Q3

REPORT INFORMATION
  Report Type: Spontaneous
  Country: US (occurrence: US)
  Receive Date: 20240814
  Receipt Date: 20240814
  Transmission Date: 20241016
  Serious: Yes (Other)
  Sender: GLAXOSMITHKLINE
  Company Number: US-GLAXOSMITHKLINE-US2024099219

PATIENT

DRUGS (1)
  1. BENLYSTA [Suspect]
     Active Substance: BELIMUMAB
     Indication: Lupus nephritis
     Dosage: 200 MG/ML, WE
     Dates: start: 2020

REACTIONS (6)
  - Lower respiratory tract infection [Recovered/Resolved]
  - Immunodeficiency [Unknown]
  - Vomiting [Recovered/Resolved]
  - Tonsillitis [Recovered/Resolved]
  - Rhinitis [Recovered/Resolved]
  - Illness [Unknown]

NARRATIVE: CASE EVENT DATE: 20240201
